FAERS Safety Report 22586481 (Version 1)
Quarter: 2023Q2

REPORT INFORMATION
  Report Type: Spontaneous
  Country: US (occurrence: US)
  Receive Date: 20230611
  Receipt Date: 20230611
  Transmission Date: 20230722
  Serious: No
  Sender: FDA-Public Use
  Company Number: US-PERRIGO-22US012889

PATIENT
  Sex: Male
  Weight: 61.224 kg

DRUGS (2)
  1. DICLOFENAC SODIUM [Suspect]
     Active Substance: DICLOFENAC SODIUM
     Indication: Pain
     Dosage: APPROXIMATELY 2 INCHES, SINGLE
     Route: 061
     Dates: start: 20220921, end: 20220921
  2. DICLOFENAC SODIUM [Suspect]
     Active Substance: DICLOFENAC SODIUM
     Dosage: APPROXIMATELY 2 INCHES, QID PRN
     Route: 061
     Dates: start: 20220922

REACTIONS (3)
  - Product administered at inappropriate site [None]
  - Off label use [None]
  - Wrong technique in product usage process [None]
